FAERS Safety Report 10414852 (Version 1)
Quarter: 2014Q2

REPORT INFORMATION
  Report Type: Spontaneous
  Country: US (occurrence: None)
  Receive Date: 20140604
  Receipt Date: 20140604
  Transmission Date: 20141212
  Serious: No
  Sender: FDA-Public Use
  Company Number: 163-POMAL-14033039

PATIENT
  Age: 65 Year
  Sex: Female

DRUGS (10)
  1. POMALYST (POMALIDOMIDE) (4 MILLIGRAM, CAPSULES) [Suspect]
     Indication: PLASMA CELL MYELOMA
     Route: 048
     Dates: start: 201306
  2. ACYCLOVIR (ACICLOVIR) (ACICLOVIR) [Concomitant]
  3. CYCLOBENAZPRINE [Concomitant]
  4. DIAZEPAM [Concomitant]
  5. GABAPENTIN [Concomitant]
  6. NEURONTIN (GABAPENTIN) [Concomitant]
  7. OXYCODONE [Concomitant]
  8. MECLIZINE (MECLOZINE) [Concomitant]
  9. MAGNESIUM [Concomitant]
  10. TEMAZEPAM [Concomitant]

REACTIONS (4)
  - Oral mucosal blistering [None]
  - Lymphadenopathy [None]
  - Fatigue [None]
  - Back pain [None]
